FAERS Safety Report 8308529-0 (Version None)
Quarter: 2012Q1

REPORT INFORMATION
  Report Type: 
  Country: None (occurrence: None)
  Receive Date: 20120327
  Receipt Date: 20110325
  Transmission Date: 20120608
  Serious: Yes (Disabling, Other)
  Sender: FDA-Public Use
  Company Number: PHHY2011US06440

PATIENT
  Age: 55 Year
  Sex: Female

DRUGS (1)
  1. GLEEVEC [Suspect]
     Indication: GASTROINTESTINAL CARCINOMA
     Dosage: 400 MG, QD, ORAL
     Route: 048
     Dates: start: 20110112

REACTIONS (6)
  - NAUSEA [None]
  - VOMITING [None]
  - ALOPECIA [None]
  - MIGRAINE [None]
  - DIARRHOEA [None]
  - WEIGHT DECREASED [None]
